FAERS Safety Report 7527866-0 (Version None)
Quarter: 2011Q2

REPORT INFORMATION
  Report Type: 
  Country: None (occurrence: None)
  Receive Date: 20110607
  Receipt Date: 20110531
  Transmission Date: 20111010
  Serious: Yes (Other)
  Sender: FDA-Public Use
  Company Number: US-ABBOTT-11P-163-0729291-00

PATIENT
  Sex: Male
  Weight: 69.008 kg

DRUGS (3)
  1. PREDNISONE [Concomitant]
     Indication: COLITIS ULCERATIVE
  2. METHOTREXATE [Suspect]
     Indication: COLITIS ULCERATIVE
  3. HUMIRA [Suspect]
     Indication: COLITIS ULCERATIVE
     Dates: start: 20100101, end: 20110401

REACTIONS (6)
  - RECTAL HAEMORRHAGE [None]
  - INJECTION SITE HAEMATOMA [None]
  - COLITIS ULCERATIVE [None]
  - DIARRHOEA [None]
  - INJECTION SITE HAEMORRHAGE [None]
  - NAUSEA [None]
